FAERS Safety Report 7624165-3 (Version None)
Quarter: 2011Q3

REPORT INFORMATION
  Report Type: 
  Country: None (occurrence: None)
  Receive Date: 20110720
  Receipt Date: 20110720
  Transmission Date: 20111222
  Serious: Yes (Other)
  Sender: FDA-Public Use
  Company Number: None

PATIENT
  Age: 44 Year
  Sex: Female
  Weight: 105.23 kg

DRUGS (4)
  1. ADDERALL 10 [Concomitant]
     Indication: ATTENTION DEFICIT/HYPERACTIVITY DISORDER
     Dosage: 60MG
     Route: 048
  2. VYVANSE [Interacting]
  3. ADDERALL XR 10 [Suspect]
     Indication: ATTENTION DEFICIT/HYPERACTIVITY DISORDER
     Dosage: 60MG
     Route: 048
  4. CONCERTA [Interacting]

REACTIONS (5)
  - PRODUCT LABEL ISSUE [None]
  - PERSONALITY DISORDER [None]
  - MOOD SWINGS [None]
  - DRUG INEFFECTIVE [None]
  - CHANGE IN SUSTAINED ATTENTION [None]
